FAERS Safety Report 13273294 (Version 2)
Quarter: 2017Q3

REPORT INFORMATION
  Report Type: Spontaneous
  Country: CA (occurrence: CA)
  Receive Date: 20170227
  Receipt Date: 20170926
  Transmission Date: 20171127
  Serious: Yes (Other)
  Sender: FDA-Public Use
  Company Number: CA-SA-2017SA029661

PATIENT
  Age: 37 Year
  Sex: Female

DRUGS (5)
  1. HUMIRA [Suspect]
     Active Substance: ADALIMUMAB
     Indication: RHEUMATOID ARTHRITIS
     Dosage: FORM SOLUTION SUBCUTANEOUS
     Route: 058
     Dates: end: 2014
  2. NAPROSYN [Suspect]
     Active Substance: NAPROXEN
     Indication: RHEUMATOID ARTHRITIS
     Route: 065
     Dates: end: 2015
  3. PREDNISONE. [Suspect]
     Active Substance: PREDNISONE
     Indication: RHEUMATOID ARTHRITIS
     Route: 065
     Dates: end: 2015
  4. ARAVA [Suspect]
     Active Substance: LEFLUNOMIDE
     Indication: RHEUMATOID ARTHRITIS
     Route: 048
     Dates: end: 20150111
  5. METHOTREXATE. [Suspect]
     Active Substance: METHOTREXATE
     Indication: RHEUMATOID ARTHRITIS
     Dosage: METHOTREXATE?SOLUTION FOR?INJECTION, 25 MG/ML
     Route: 065
     Dates: start: 20121109, end: 2014

REACTIONS (6)
  - Nausea [Not Recovered/Not Resolved]
  - Vomiting [Not Recovered/Not Resolved]
  - Urinary tract disorder [Not Recovered/Not Resolved]
  - Diarrhoea [Not Recovered/Not Resolved]
  - Cholelithiasis [Not Recovered/Not Resolved]
  - Malaise [Not Recovered/Not Resolved]
